FAERS Safety Report 8989055 (Version 2)
Quarter: 2013Q1

REPORT INFORMATION
  Report Type: Report from Study
  Country: JP (occurrence: JP)
  Receive Date: 20121227
  Receipt Date: 20130306
  Transmission Date: 20140127
  Serious: Yes (Hospitalization)
  Sender: FDA-Public Use
  Company Number: JP-ABBOTT-12P-087-1027121-00

PATIENT
  Age: 36 Year
  Sex: Male
  Weight: 64.7 kg

DRUGS (5)
  1. HUMIRA [Suspect]
     Indication: CROHN^S DISEASE
     Route: 058
     Dates: start: 20120609, end: 20120609
  2. HUMIRA [Suspect]
     Dates: start: 20120623, end: 20120623
  3. HUMIRA [Suspect]
     Dates: start: 20120707
  4. MESALAZINE [Concomitant]
     Indication: CROHN^S DISEASE
     Route: 048
     Dates: end: 20120706
  5. CAMOSTAT MESILATE [Concomitant]
     Indication: CROHN^S DISEASE
     Route: 048

REACTIONS (1)
  - Subileus [Recovered/Resolved]
